FAERS Safety Report 25871127 (Version 1)
Quarter: 2025Q4

REPORT INFORMATION
  Report Type: Spontaneous
  Country: IN (occurrence: IN)
  Receive Date: 20251001
  Receipt Date: 20251001
  Transmission Date: 20260118
  Serious: Yes (Hospitalization, Other)
  Sender: ZYDUS PHARM
  Company Number: IN-ZYDUS-IN-ZYDUS-128797

PATIENT

DRUGS (14)
  1. AZATHIOPRINE [Interacting]
     Active Substance: AZATHIOPRINE
     Indication: Type 2 lepra reaction
     Dosage: 25 MILLIGRAM DAILY
     Route: 065
  2. AZATHIOPRINE [Interacting]
     Active Substance: AZATHIOPRINE
     Dosage: 50 MILLIGRAM DAILY
     Route: 065
  3. THALIDOMIDE [Interacting]
     Active Substance: THALIDOMIDE
     Indication: Type 2 lepra reaction
     Dosage: 300 MILLIGRAM, QD
     Route: 065
  4. THALIDOMIDE [Interacting]
     Active Substance: THALIDOMIDE
     Dosage: 200 MILLIGRAM, QD
     Route: 065
  5. DAPSONE [Concomitant]
     Active Substance: DAPSONE
     Indication: Leprosy
     Dosage: 100 MILLIGRAM, QD
     Route: 065
  6. DAPSONE [Concomitant]
     Active Substance: DAPSONE
     Indication: Neuropathy peripheral
  7. CLOFAZIMINE [Concomitant]
     Active Substance: CLOFAZIMINE
     Indication: Leprosy
     Dosage: 100 MILLIGRAM, QD
     Route: 065
  8. CLOFAZIMINE [Concomitant]
     Active Substance: CLOFAZIMINE
     Indication: Neuropathy peripheral
  9. PREDNISOLONE [Concomitant]
     Active Substance: PREDNISOLONE
     Indication: Type 2 lepra reaction
     Dosage: 40 MILLIGRAM, QD
     Route: 048
  10. PREDNISOLONE [Concomitant]
     Active Substance: PREDNISOLONE
     Indication: Neuropathy peripheral
     Dosage: 20 MILLIGRAM, QD
     Route: 048
  11. PREDNISOLONE [Concomitant]
     Active Substance: PREDNISOLONE
     Indication: Leprosy
     Dosage: 60 MILLIGRAM, QD
     Route: 048
  12. PREDNISOLONE [Concomitant]
     Active Substance: PREDNISOLONE
     Dosage: UNK
     Route: 048
  13. RIFAMPIN [Concomitant]
     Active Substance: RIFAMPIN
     Indication: Leprosy
     Dosage: 600 MILLIGRAM MONTHLY
     Route: 065
  14. RIFAMPIN [Concomitant]
     Active Substance: RIFAMPIN
     Indication: Neuropathy peripheral

REACTIONS (2)
  - Deep vein thrombosis [Unknown]
  - Drug interaction [Unknown]
